FAERS Safety Report 16302297 (Version 1)
Quarter: 2019Q2

REPORT INFORMATION
  Report Type: Spontaneous
  Country: JP (occurrence: JP)
  Receive Date: 20190512
  Receipt Date: 20190512
  Transmission Date: 20190711
  Serious: Yes (Death, Other)
  Sender: FDA-Public Use
  Company Number: JP-BAXTER-2019BAX009528

PATIENT
  Age: 8 Decade
  Sex: Male

DRUGS (1)
  1. DIANEAL [Suspect]
     Active Substance: CALCIUM CHLORIDE\DEXTROSE\MAGNESIUM CHLORIDE\SODIUM CHLORIDE\SODIUM LACTATE
     Indication: PERITONEAL DIALYSIS
     Dosage: 2000 (UNIT NOT REPORTED), 4 TIMES
     Route: 033
     Dates: start: 20100501, end: 20190425

REACTIONS (2)
  - Cardiac failure [Fatal]
  - Ventricular fibrillation [Unknown]
